FAERS Safety Report 18071541 (Version 1)
Quarter: 2020Q3

REPORT INFORMATION
  Report Type: Spontaneous
  Country: US (occurrence: US)
  Receive Date: 20200724
  Receipt Date: 20200724
  Transmission Date: 20201103
  Serious: Yes (Death)
  Sender: FDA-Public Use
  Company Number: None

PATIENT
  Age: 80 Year
  Sex: Male

DRUGS (10)
  1. ZYTIGA [Suspect]
     Active Substance: ABIRATERONE ACETATE
     Indication: PROSTATE CANCER
     Route: 048
     Dates: start: 20200626, end: 20200722
  2. BICALUTAMIDE. [Concomitant]
     Active Substance: BICALUTAMIDE
  3. MORPHINE SUL [Concomitant]
     Active Substance: MORPHINE SULFATE
  4. DOXYCYCL HYC [Concomitant]
  5. PREDNISONE. [Concomitant]
     Active Substance: PREDNISONE
  6. TRAVATAN Z [Concomitant]
     Active Substance: TRAVOPROST
  7. HYDROCHLOROT [Concomitant]
     Active Substance: HYDROCHLOROTHIAZIDE
  8. ONDANSETRON [Concomitant]
     Active Substance: ONDANSETRON
  9. FINASTERIDE. [Concomitant]
     Active Substance: FINASTERIDE
  10. HYDROCO/APAP [Concomitant]
     Active Substance: ACETAMINOPHEN\HYDROCODONE

REACTIONS (1)
  - Death [None]

NARRATIVE: CASE EVENT DATE: 20200722
